FAERS Safety Report 5142076-2 (Version None)
Quarter: 2006Q4

REPORT INFORMATION
  Report Type: 
  Country: None (occurrence: None)
  Receive Date: 20061102
  Receipt Date: 20060829
  Transmission Date: 20070319
  Serious: Yes (Hospitalization, Other)
  Sender: FDA-Public Use
  Company Number: US-AMGEN-US191668

PATIENT
  Sex: Male
  Weight: 72.1 kg

DRUGS (4)
  1. EPOGEN [Suspect]
     Indication: DIALYSIS
     Dates: start: 20060801
  2. PREDNISONE TAB [Concomitant]
  3. NEXIUM [Concomitant]
  4. METAMUCIL [Concomitant]

REACTIONS (4)
  - ANAEMIA [None]
  - BONE MARROW FAILURE [None]
  - FLUID OVERLOAD [None]
  - THERAPEUTIC RESPONSE DECREASED [None]
